FAERS Safety Report 6071224-5 (Version None)
Quarter: 2009Q1

REPORT INFORMATION
  Report Type: 
  Country: None (occurrence: None)
  Receive Date: 20090209
  Receipt Date: 20090129
  Transmission Date: 20090719
  Serious: Yes (Hospitalization, Other)
  Sender: FDA-Public Use
  Company Number: FI-ELI_LILLY_AND_COMPANY-FI200901005173

PATIENT
  Age: 68 Year
  Sex: Male

DRUGS (7)
  1. ZYPREXA [Suspect]
     Indication: PSYCHOTIC DISORDER
     Route: 048
     Dates: end: 20080826
  2. ZYPREXA [Suspect]
     Dosage: 15 MG, UNK
     Route: 048
     Dates: start: 20080827, end: 20081014
  3. IDEOS [Concomitant]
     Indication: OSTEOPOROSIS
     Dosage: 500 MG, 2/D
     Route: 048
  4. EFFEXOR [Concomitant]
     Indication: DEPRESSION
     Dosage: 75 MG, 2/D
     Route: 048
  5. THYROXIN [Concomitant]
     Indication: HYPOTHYROIDISM
     Dosage: UNK UNK, DAILY (1/D)
     Route: 048
  6. BISOPROLOL FUMARATE [Concomitant]
     Indication: HYPERTENSION
     Dosage: 5 MG, DAILY (1/D)
     Route: 048
  7. OPAMOX [Concomitant]
     Indication: ANXIETY
     Dosage: 22.5 MG, DAILY (1/D)
     Route: 048

REACTIONS (2)
  - PULMONARY EMBOLISM [None]
  - SYNCOPE [None]
